FAERS Safety Report 24976567 (Version 1)
Quarter: 2025Q1

REPORT INFORMATION
  Report Type: Spontaneous
  Country: GB (occurrence: GB)
  Receive Date: 20250217
  Receipt Date: 20250217
  Transmission Date: 20250408
  Serious: Yes (Other)
  Sender: MYLAN
  Company Number: GB-MHRA-TPP20336285C11034674YC1737998873084

PATIENT
  Age: 57 Year
  Sex: Female
  Weight: 93 kg

DRUGS (30)
  1. AMLODIPINE [Suspect]
     Active Substance: AMLODIPINE BESYLATE
     Indication: Ill-defined disorder
     Route: 065
  2. ESTRADIOL [Concomitant]
     Active Substance: ESTRADIOL
     Indication: Ill-defined disorder
     Dosage: 1 DOSAGE FORM, Q2W (APPLY ONE PATCH TWICE WEEKLY)
     Route: 065
     Dates: start: 20240116
  3. BECLOMETHASONE\FORMOTEROL [Concomitant]
     Active Substance: BECLOMETHASONE\FORMOTEROL
     Indication: Ill-defined disorder
     Dosage: 2 DOSAGE FORM, BID (INHALE TWO PUFFS TWICE ADAY)
     Route: 055
     Dates: start: 20240116
  4. FUROSEMIDE [Concomitant]
     Active Substance: FUROSEMIDE
     Indication: Ill-defined disorder
     Dosage: 1 DOSAGE FORM, AM (TAKE ONE IN THE MORNING)
     Route: 065
     Dates: start: 20240116
  5. POTASSIUM BICARBONATE\SODIUM ALGINATE [Concomitant]
     Active Substance: POTASSIUM BICARBONATE\SODIUM ALGINATE
     Indication: Ill-defined disorder
     Dosage: UNK, QID (5ML - 10ML 4 TIMES/DAY)
     Route: 065
     Dates: start: 20240116
  6. LEVOFLOXACIN [Concomitant]
     Active Substance: LEVOFLOXACIN
     Indication: Ill-defined disorder
     Dosage: UNK, QD (ONCE A DAY FOR 7 DAYS FOR ACUTE EXACERBATION OF...)
     Route: 065
     Dates: start: 20240116
  7. LEVOFLOXACIN [Concomitant]
     Active Substance: LEVOFLOXACIN
     Indication: Chronic obstructive pulmonary disease
  8. LORAZEPAM [Concomitant]
     Active Substance: LORAZEPAM
     Indication: Ill-defined disorder
     Dosage: 1 DOSAGE FORM, BID (TAKE ONE TABLET, NO MORE THAN TWICE DAILY WHEN)
     Route: 065
     Dates: start: 20240116
  9. NITRAZEPAM [Concomitant]
     Active Substance: NITRAZEPAM
     Indication: Ill-defined disorder
     Dosage: 2 DOSAGE FORM, PM (TAKE TWO AT NIGHT)
     Route: 065
     Dates: start: 20240116
  10. PANTOPRAZOLE [Concomitant]
     Active Substance: PANTOPRAZOLE
     Indication: Ill-defined disorder
     Dosage: 1 DOSAGE FORM, QD (TAKE ONE DAILY)
     Route: 065
     Dates: start: 20240116
  11. PREDNISOLONE [Concomitant]
     Active Substance: PREDNISOLONE
     Indication: Ill-defined disorder
     Dosage: 6 DOSAGE FORM, AM (TAKE 6 TABLETS (IN THE MORNING) FOR 5 DAYS FOR)
     Route: 065
     Dates: start: 20240116
  12. PROGESTERONE [Concomitant]
     Active Substance: PROGESTERONE
     Indication: Ill-defined disorder
     Dosage: 1 DOSAGE FORM, QD (TAKE ONE DAILY)
     Route: 065
     Dates: start: 20240116
  13. RAMIPRIL [Concomitant]
     Active Substance: RAMIPRIL
     Indication: Ill-defined disorder
     Dosage: 1 DOSAGE FORM, QD (TAKE ONE DAILY)
     Route: 065
     Dates: start: 20240116
  14. ALBUTEROL [Concomitant]
     Active Substance: ALBUTEROL
     Indication: Ill-defined disorder
     Route: 055
     Dates: start: 20240116
  15. SODIUM CHLORIDE [Concomitant]
     Active Substance: SODIUM CHLORIDE
     Indication: Ill-defined disorder
     Route: 065
     Dates: start: 20240116
  16. SPIRIVA [Concomitant]
     Active Substance: TIOTROPIUM BROMIDE MONOHYDRATE
     Indication: Ill-defined disorder
     Dosage: 2 DOSAGE FORM, QD (TWO PUFFS ONCE DAILY)
     Route: 065
     Dates: start: 20240116
  17. THEOPHYLLINE ANHYDROUS [Concomitant]
     Active Substance: THEOPHYLLINE ANHYDROUS
     Indication: Ill-defined disorder
     Dosage: 2 DOSAGE FORM, BID (TAKE TWO EVERY 12 HRS)
     Route: 065
     Dates: start: 20240116
  18. Zerobase [Concomitant]
     Indication: Ill-defined disorder
     Route: 065
     Dates: start: 20240828
  19. CYCLIZINE [Concomitant]
     Active Substance: CYCLIZINE
     Indication: Ill-defined disorder
     Dosage: 1 DOSAGE FORM, TID (ONE THREE TIMES ADAY IF NEEDED)
     Route: 065
     Dates: start: 20241114, end: 20241115
  20. DOXYCYCLINE [Concomitant]
     Active Substance: DOXYCYCLINE
     Indication: Ill-defined disorder
     Dosage: 2 DOSAGE FORM, QD (TWO CAPSULES IMMEDIATELY AND THEN ONE CAPSULE ONCE A DAY)
     Route: 065
     Dates: start: 20250127
  21. DOXYCYCLINE [Concomitant]
     Active Substance: DOXYCYCLINE
     Indication: Chronic obstructive pulmonary disease
     Dosage: 1 DOSAGE FORM, QD (TWO CAPSULES IMMEDIATELY AND THEN ONE CAPSULE ONCE A DAY)
     Route: 065
  22. NITROGLYCERIN [Concomitant]
     Active Substance: NITROGLYCERIN
     Indication: Ill-defined disorder
     Route: 065
     Dates: start: 20241126, end: 20241226
  23. NITROGLYCERIN [Concomitant]
     Active Substance: NITROGLYCERIN
     Indication: Chest pain
  24. NYSTATIN [Concomitant]
     Active Substance: NYSTATIN
     Indication: Ill-defined disorder
     Dosage: 1 DROP, QID (1 DROP 4 TIMES A DAY)
     Route: 065
     Dates: start: 20250110, end: 20250117
  25. ATORVASTATIN [Concomitant]
     Active Substance: ATORVASTATIN
     Indication: Ill-defined disorder
     Dosage: 1 DOSAGE FORM, PM (ONE AT NIGHT)
     Route: 065
     Dates: start: 20240116, end: 20250127
  26. BISOPROLOL [Concomitant]
     Active Substance: BISOPROLOL
     Indication: Ill-defined disorder
     Dosage: 2 DOSAGE FORM, QD (TAKE TWO DAILY)
     Route: 065
     Dates: start: 20240116
  27. CETIRIZINE [Concomitant]
     Active Substance: CETIRIZINE HYDROCHLORIDE
     Indication: Ill-defined disorder
     Dosage: 1 DOSAGE FORM, QD (TAKE ONE DAILY)
     Route: 065
     Dates: start: 20240116
  28. CHLORPHENIRAMINE MALEATE [Concomitant]
     Active Substance: CHLORPHENIRAMINE MALEATE
     Indication: Ill-defined disorder
     Dosage: 1 DOSAGE FORM, BID (TAKE ONE TWICE A DAY)
     Route: 065
     Dates: start: 20240116
  29. CLOPIDOGREL [Concomitant]
     Active Substance: CLOPIDOGREL BISULFATE
     Indication: Ill-defined disorder
     Dosage: 1 DOSAGE FORM, QD (TAKE ONE ONCE DAILY.)
     Route: 065
     Dates: start: 20240116
  30. EASYHALER [Concomitant]
     Indication: Ill-defined disorder
     Route: 055
     Dates: start: 20240116

REACTIONS (3)
  - Swelling face [Recovering/Resolving]
  - Blister [Recovering/Resolving]
  - Joint swelling [Recovering/Resolving]
